FAERS Safety Report 5720951-5 (Version None)
Quarter: 2008Q2

REPORT INFORMATION
  Report Type: 
  Country: None (occurrence: None)
  Receive Date: 20080425
  Receipt Date: 20080425
  Transmission Date: 20081010
  Serious: Yes (Hospitalization, Disabling, Other)
  Sender: FDA-Public Use
  Company Number: None

PATIENT
  Age: 27 Year
  Sex: Male
  Weight: 47.6277 kg

DRUGS (1)
  1. CHANTIX [Suspect]
     Indication: SMOKING CESSATION THERAPY
     Dosage: 0.5 MG - 1 MG 2 TIMES PER DAY PO
     Route: 048
     Dates: start: 20080321, end: 20080404

REACTIONS (13)
  - ANOREXIA [None]
  - ANXIETY [None]
  - CLAUSTROPHOBIA [None]
  - CRYING [None]
  - INSOMNIA [None]
  - MANIA [None]
  - MEMORY IMPAIRMENT [None]
  - MOOD SWINGS [None]
  - NIGHTMARE [None]
  - OVERDOSE [None]
  - PANIC ATTACK [None]
  - SOCIAL PHOBIA [None]
  - SUICIDAL IDEATION [None]
